FAERS Safety Report 23270463 (Version 1)
Quarter: 2023Q4

REPORT INFORMATION
  Report Type: Spontaneous
  Country: US (occurrence: US)
  Receive Date: 20231207
  Receipt Date: 20231207
  Transmission Date: 20240110
  Serious: No
  Sender: FDA-Public Use
  Company Number: US-BIOVITRUM-2023-US-019385

PATIENT
  Age: 12 Month
  Sex: Male

DRUGS (1)
  1. SYNAGIS [Suspect]
     Active Substance: PALIVIZUMAB
     Indication: Antiviral prophylaxis
     Dosage: 50MG/0.5ML VIAL / 100MG/1ML VIAL?INJECT 15MG/KG INTRAMUSCULARLY EVERY MONTH FOR 5 MONTHS
     Route: 030

REACTIONS (1)
  - Respiratory syncytial virus infection [Unknown]
